FAERS Safety Report 7027675-5 (Version None)
Quarter: 2010Q4

REPORT INFORMATION
  Report Type: 
  Country: None (occurrence: None)
  Receive Date: 20101004
  Receipt Date: 20100921
  Transmission Date: 20110411
  Serious: Yes (Death)
  Sender: FDA-Public Use
  Company Number: SE-WATSON-2010-13175

PATIENT
  Age: 30 Year
  Sex: Male

DRUGS (9)
  1. NANDROLONE DECANOATE (WATSON LABORATORIES) [Suspect]
     Indication: PRODUCT USED FOR UNKNOWN INDICATION
     Dosage: UNK
  2. ALPRAZOLAM [Suspect]
     Indication: PRODUCT USED FOR UNKNOWN INDICATION
     Dosage: UNK
  3. CARISOPRODOL (WATSON LABORATORIES) [Suspect]
     Indication: PRODUCT USED FOR UNKNOWN INDICATION
     Dosage: UNK
  4. ACETAMINOPHEN/CODEINE PHOSPHATE 300/15 (WATSON LABORATORIES) [Suspect]
     Indication: PRODUCT USED FOR UNKNOWN INDICATION
     Dosage: UNK
  5. MORPHINE SULFATE INJ [Suspect]
     Indication: PRODUCT USED FOR UNKNOWN INDICATION
     Dosage: UNK
  6. SERTRALINE HYDROCHLORIDE [Suspect]
     Indication: PRODUCT USED FOR UNKNOWN INDICATION
     Dosage: UNK
  7. ZOLPIDEM TARTRATE [Suspect]
     Indication: PRODUCT USED FOR UNKNOWN INDICATION
     Dosage: UNK
  8. GAMMA-HYDROXYBUTYRATE [Suspect]
     Indication: DRUG ABUSE
     Dosage: UNK
  9. AMPHETAMINE AND DEXTROAMPHETAMINE SALTS [Suspect]
     Indication: DRUG ABUSE
     Dosage: UNK

REACTIONS (1)
  - OVERDOSE [None]
